FAERS Safety Report 6252190-6 (Version None)
Quarter: 2009Q2

REPORT INFORMATION
  Report Type: 
  Country: None (occurrence: None)
  Receive Date: 20090629
  Receipt Date: 20090615
  Transmission Date: 20091009
  Serious: Yes (Other)
  Sender: FDA-Public Use
  Company Number: PAR_03056_2009

PATIENT
  Age: 75 Year
  Sex: Male

DRUGS (6)
  1. CAPTOPRIL [Suspect]
     Indication: HYPERTENSION
     Dosage: (DF ORAL)
     Route: 048
  2. CAPTORPIL (CAPTOPRIL) [Suspect]
     Indication: HYPERTENSION
     Dosage: (DF ORAL)
     Route: 048
  3. IMIPENEM (IMIPENEM) [Suspect]
     Indication: DRUG USE FOR UNKNOWN INDICATION
     Dosage: (DF)
  4. UNSPECIFIED MEDICATIONS [Concomitant]
  5. INDAPAMIDE [Concomitant]
  6. VALSARTAN [Concomitant]

REACTIONS (2)
  - HAEMORRHAGE [None]
  - LINEAR IGA DISEASE [None]
